FAERS Safety Report 4684193-7 (Version None)
Quarter: 2005Q2

REPORT INFORMATION
  Report Type: 
  Country: None (occurrence: None)
  Receive Date: 20050607
  Receipt Date: 20050527
  Transmission Date: 20051028
  Serious: Yes (Life-Threatening)
  Sender: FDA-Public Use
  Company Number: FR-GLAXOSMITHKLINE-B0382579A

PATIENT
  Age: 78 Year
  Sex: Male
  Weight: 75 kg

DRUGS (17)
  1. REQUIP [Suspect]
     Indication: RESTLESS LEGS SYNDROME
     Dosage: .25MG THREE TIMES PER DAY
     Route: 048
     Dates: start: 20041116
  2. NEURONTIN [Concomitant]
     Route: 048
  3. RIVOTRIL [Concomitant]
     Route: 048
  4. THIAMINE HCL [Concomitant]
     Route: 048
  5. VITAMIN B6 [Concomitant]
     Route: 048
  6. VITAMIN B-12 [Concomitant]
     Route: 048
  7. SPECIAFOLDINE [Concomitant]
     Route: 048
  8. LAMALINE [Concomitant]
     Route: 054
  9. TRANDATE [Concomitant]
     Route: 065
  10. LASILIX [Concomitant]
     Route: 065
  11. RENAGEL [Concomitant]
     Route: 065
  12. VASTEN [Concomitant]
     Route: 065
  13. KARDEGIC [Concomitant]
     Route: 048
  14. COVERSYL [Concomitant]
     Route: 065
  15. AMLOR [Concomitant]
     Route: 065
  16. NEORECORMON [Concomitant]
     Route: 065
  17. UN ALPHA [Concomitant]
     Route: 065

REACTIONS (3)
  - DISTURBANCE IN ATTENTION [None]
  - ROAD TRAFFIC ACCIDENT [None]
  - SUDDEN ONSET OF SLEEP [None]
